FAERS Safety Report 11682329 (Version 1)
Quarter: 2015Q4

REPORT INFORMATION
  Report Type: Spontaneous
  Country: US (occurrence: None)
  Receive Date: 20151029
  Receipt Date: 20151029
  Transmission Date: 20160304
  Serious: Yes (Life-Threatening, Hospitalization)
  Sender: FDA-Public Use
  Company Number: None

PATIENT
  Age: 51 Year
  Sex: Male
  Weight: 110 kg

DRUGS (12)
  1. NOREPINEPHRINE 4 MG / 5 ML HOSPIRA [Suspect]
     Active Substance: NOREPINEPHRINE\NOREPINEPHRINE BITARTRATE
     Indication: CARDIAC ARREST
     Dates: start: 20151005, end: 20151005
  2. INSULIN [Concomitant]
     Active Substance: INSULIN NOS
  3. FUROSEMIDE. [Concomitant]
     Active Substance: FUROSEMIDE
  4. KCL [Concomitant]
     Active Substance: POTASSIUM CHLORIDE
  5. DOPAMINE [Concomitant]
     Active Substance: DOPAMINE\DOPAMINE HYDROCHLORIDE
  6. PHENYLEPHRINE [Concomitant]
     Active Substance: PHENYLEPHRINE\PHENYLEPHRINE HYDROCHLORIDE
  7. NOREPINEPHRINE 4 MG / 5 ML HOSPIRA [Suspect]
     Active Substance: NOREPINEPHRINE\NOREPINEPHRINE BITARTRATE
     Indication: CARDIOGENIC SHOCK
     Dates: start: 20151005, end: 20151005
  8. NOREPINEPHRINE 4 MG / 5 ML HOSPIRA [Suspect]
     Active Substance: NOREPINEPHRINE\NOREPINEPHRINE BITARTRATE
     Indication: HYPOTENSION
     Dates: start: 20151005, end: 20151005
  9. PANTOPRAZOLE [Concomitant]
     Active Substance: PANTOPRAZOLE SODIUM
  10. VASOPRESSIN. [Concomitant]
     Active Substance: VASOPRESSIN
  11. HEPARIN [Concomitant]
     Active Substance: HEPARIN SODIUM
  12. VANCOMYCIN [Concomitant]
     Active Substance: VANCOMYCIN

REACTIONS (2)
  - Blood pressure decreased [None]
  - Therapy change [None]

NARRATIVE: CASE EVENT DATE: 20151005
